FAERS Safety Report 4648389-2 (Version None)
Quarter: 2005Q2

REPORT INFORMATION
  Report Type: 
  Country: None (occurrence: None)
  Receive Date: 20050427
  Receipt Date: 20050415
  Transmission Date: 20051028
  Serious: Yes (Death)
  Sender: FDA-Public Use
  Company Number: BRO-008485

PATIENT
  Age: 74 Year
  Sex: Male

DRUGS (10)
  1. IOPAMIDOL-300 [Suspect]
     Indication: BLADDER CANCER
     Dosage: 20 ML; IV
     Route: 042
     Dates: start: 20050323, end: 20050323
  2. IOPAMIDOL-300 [Suspect]
     Indication: UROGRAPHY
     Dosage: 20 ML; IV
     Route: 042
     Dates: start: 20050323, end: 20050323
  3. FURTULON, (DOXIFULURIDINE) [Concomitant]
  4. MARZULENE , (SODIUM GUALENATE) [Concomitant]
  5. DEPAS, (ETIZOLAM) [Concomitant]
  6. BISOLVON , (BROMHEXINE HYDROCHLORIDE) [Concomitant]
  7. PROMAC    /JPN/, (POLAPREZINC) [Concomitant]
  8. FAMOTIDINE [Concomitant]
  9. FLUTIDE ROTADISK [Concomitant]
  10. TERSIGAN METERED AEROSOL [Concomitant]

REACTIONS (6)
  - ANAPHYLACTIC SHOCK [None]
  - CARDIO-RESPIRATORY ARREST [None]
  - COUGH [None]
  - FLUSHING [None]
  - INFUSION RELATED REACTION [None]
  - NO REACTION ON PREVIOUS EXPOSURE TO DRUG [None]
